FAERS Safety Report 24357467 (Version 2)
Quarter: 2024Q4

REPORT INFORMATION
  Report Type: Report from Study
  Country: CA (occurrence: CA)
  Receive Date: 20240924
  Receipt Date: 20241018
  Transmission Date: 20250115
  Serious: Yes (Hospitalization, Other)
  Sender: REGENERON
  Company Number: CA-ULTRAGENYX PHARMACEUTICAL INC.-CA-UGX-24-01754

PATIENT
  Sex: Male

DRUGS (25)
  1. EVKEEZA [Suspect]
     Active Substance: EVINACUMAB-DGNB
     Indication: Type IIa hyperlipidaemia
     Dosage: 15 MILLIGRAM/KILOGRAM, EVERY FOUR WEEKS
     Route: 042
     Dates: start: 20230405
  2. EVKEEZA [Suspect]
     Active Substance: EVINACUMAB-DGNB
     Dosage: 15 MILLIGRAM/KILOGRAM, MONTHLY
     Route: 042
     Dates: start: 20231214
  3. EVKEEZA [Suspect]
     Active Substance: EVINACUMAB-DGNB
     Dosage: 15 MILLIGRAM/KILOGRAM, MONTHLY
     Route: 042
     Dates: start: 20240815
  4. ATORVASTATIN [Concomitant]
     Active Substance: ATORVASTATIN
     Indication: Type IIa hyperlipidaemia
     Dosage: 80 MILLIGRAM ID
     Route: 048
     Dates: start: 2010
  5. EZETIMIBE [Concomitant]
     Active Substance: EZETIMIBE
     Indication: Type IIa hyperlipidaemia
     Dosage: 10 MILLIGRAM; ID
     Route: 048
     Dates: start: 200102
  6. TELMISARTAN [Concomitant]
     Active Substance: TELMISARTAN
     Indication: Hypertension
     Dosage: 80 MILLIGRAM ID
     Route: 048
     Dates: start: 2011, end: 20240927
  7. TELMISARTAN [Concomitant]
     Active Substance: TELMISARTAN
     Dosage: 40 MILLIGRAM ID
     Route: 048
     Dates: start: 20240928
  8. VITAMIN E [Concomitant]
     Active Substance: .ALPHA.-TOCOPHEROL
     Indication: Supplementation therapy
     Dosage: 400 INTERNATIONAL UNIT
     Route: 048
     Dates: start: 20191210, end: 20240825
  9. VITAMIN E [Concomitant]
     Active Substance: .ALPHA.-TOCOPHEROL
     Dosage: 400 INTERNATIONAL UNIT
     Route: 048
     Dates: start: 20240901
  10. OMEGA 3 6 9 COMPLEX [Concomitant]
     Indication: Supplementation therapy
     Dosage: 1 CAPSULE ID
     Route: 048
     Dates: start: 20191210, end: 20240825
  11. OMEGA 3 6 9 COMPLEX [Concomitant]
     Dosage: 1 CAPSULE ID
     Route: 048
     Dates: start: 20240901
  12. LOMITAPIDE [Concomitant]
     Active Substance: LOMITAPIDE
     Indication: Type IIa hyperlipidaemia
     Dosage: 5 MILLIGRAM 2/3 JOURS
     Route: 048
     Dates: start: 20200219, end: 20230115
  13. LOMITAPIDE [Concomitant]
     Active Substance: LOMITAPIDE
     Dosage: 5 MILLIGRAM ID
     Route: 048
     Dates: start: 20230116, end: 20240825
  14. LOMITAPIDE [Concomitant]
     Active Substance: LOMITAPIDE
     Dosage: 5 MILLIGRAM ID
     Route: 048
     Dates: start: 20240901
  15. ELIQUIS [Concomitant]
     Active Substance: APIXABAN
     Indication: Atrial fibrillation
     Dosage: 5 MILLIGRAM, BID
     Route: 048
     Dates: start: 20200707
  16. TARO-TESTOSTERONE [Concomitant]
     Indication: Andropause
     Dosage: 5 GRAM ID
     Dates: start: 20200929
  17. BISOPROLOL [Concomitant]
     Active Substance: BISOPROLOL\BISOPROLOL FUMARATE
     Indication: Atrial fibrillation
     Dosage: 10 MILLIGRAM,ID
     Route: 048
     Dates: start: 20210407, end: 20230920
  18. BISOPROLOL [Concomitant]
     Active Substance: BISOPROLOL\BISOPROLOL FUMARATE
     Dosage: 7.5 MILLIGRAM,ID
     Route: 048
     Dates: start: 20230921, end: 20240827
  19. BISOPROLOL [Concomitant]
     Active Substance: BISOPROLOL\BISOPROLOL FUMARATE
     Dosage: 5 MILLIGRAM,ID
     Route: 048
     Dates: start: 20230921, end: 20240827
  20. BISOPROLOL [Concomitant]
     Active Substance: BISOPROLOL\BISOPROLOL FUMARATE
     Dosage: 10 MILLIGRAM,ID
     Route: 048
     Dates: start: 20240828
  21. SILDENAFIL [Concomitant]
     Active Substance: SILDENAFIL
     Indication: Erectile dysfunction
     Dosage: 100 MILLIGRAM, PRN
     Route: 048
     Dates: start: 20210707
  22. INDAPAMIDE [Concomitant]
     Active Substance: INDAPAMIDE
     Indication: Hypertension
     Dosage: 1.25 MILLIGRAM, ID
     Route: 048
     Dates: start: 20211005
  23. VARENICLINE TARTRATE [Concomitant]
     Active Substance: VARENICLINE TARTRATE
     Indication: Smoking cessation therapy
     Dosage: 0.5 MILLIGRAM ID
     Route: 048
     Dates: start: 20230415, end: 20230417
  24. VARENICLINE TARTRATE [Concomitant]
     Active Substance: VARENICLINE TARTRATE
     Dosage: 0.5 MILLIGRAM, BID
     Route: 048
     Dates: start: 20230418, end: 20230529
  25. MELATONIN [Concomitant]
     Active Substance: MELATONIN
     Indication: Sleep disorder
     Dosage: 5 MILLIGRAM,ID
     Route: 048
     Dates: start: 20240826, end: 20240830

REACTIONS (10)
  - Hypervolaemia [Recovered/Resolved]
  - Cardiac failure [Recovered/Resolved]
  - Pulmonary hypertension [Unknown]
  - Mitral valve incompetence [Unknown]
  - Dehydration [Recovered/Resolved]
  - Nasopharyngitis [Recovered/Resolved]
  - Hypotension [Recovered/Resolved]
  - Tendonitis [Recovered/Resolved]
  - Gastroenteritis [Recovered/Resolved]
  - Venous haemorrhage [Recovered/Resolved]

NARRATIVE: CASE EVENT DATE: 20231017
